FAERS Safety Report 5509751-9 (Version None)
Quarter: 2007Q4

REPORT INFORMATION
  Report Type: 
  Country: None (occurrence: None)
  Receive Date: 20071107
  Receipt Date: 20071107
  Transmission Date: 20080405
  Serious: Yes (Hospitalization)
  Sender: FDA-Public Use
  Company Number: None

PATIENT
  Sex: Female
  Weight: 80 kg

DRUGS (4)
  1. CYTARABINE [Suspect]
     Dosage: 1190 MG
  2. DAUNORUBICIN HCL [Suspect]
     Dosage: 450 MG
  3. G-CSF (FILGRASTIM, AMGEN) [Suspect]
     Dosage: 0 MG
  4. LEUKINE [Suspect]
     Dosage: 0 MG

REACTIONS (7)
  - CARDIAC FAILURE [None]
  - CARDIOGENIC SHOCK [None]
  - CARDIOMYOPATHY [None]
  - FUNGAEMIA [None]
  - FUSARIUM INFECTION [None]
  - NO THERAPEUTIC RESPONSE [None]
  - PULMONARY OEDEMA [None]
